FAERS Safety Report 8505664-9 (Version None)
Quarter: 2012Q3

REPORT INFORMATION
  Report Type: 
  Country: None (occurrence: None)
  Receive Date: 20120712
  Receipt Date: 20120703
  Transmission Date: 20120928
  Serious: Yes (Other)
  Sender: FDA-Public Use
  Company Number: JP-VERTEX PHARMACEUTICALS INC.-AE-2012-009868

PATIENT
  Age: 49 Year
  Sex: Female

DRUGS (6)
  1. RIBAVIRIN [Concomitant]
     Indication: HEPATITIS C
     Route: 048
     Dates: start: 20120515, end: 20120604
  2. RIBAVIRIN [Concomitant]
     Route: 048
     Dates: start: 20120605
  3. PEG-INTRON [Concomitant]
     Indication: HEPATITIS C
     Route: 048
     Dates: start: 20120515, end: 20120528
  4. PEG-INTRON [Concomitant]
     Route: 058
     Dates: start: 20120529
  5. URSO 250 [Concomitant]
     Route: 048
  6. TELAVIC (TELAPREVIR) [Suspect]
     Indication: HEPATITIS C
     Route: 048
     Dates: start: 20120515

REACTIONS (1)
  - NEUTROPHIL COUNT DECREASED [None]
